FAERS Safety Report 11147139 (Version 5)
Quarter: 2015Q4

REPORT INFORMATION
  Report Type: Report from Study
  Country: FR (occurrence: FR)
  Receive Date: 20150528
  Receipt Date: 20151203
  Transmission Date: 20160304
  Serious: Yes (Death, Hospitalization)
  Sender: FDA-Public Use
  Company Number: FR-B.I. PHARMACEUTICALS,INC./RIDGEFIELD-2015-BI-21014II

PATIENT
  Age: 69 Year
  Sex: Female

DRUGS (18)
  1. BIBF 1120 [Suspect]
     Active Substance: NINTEDANIB
     Indication: FALLOPIAN TUBE CANCER
     Route: 065
     Dates: end: 20150505
  2. BISOPROLOL [Concomitant]
     Active Substance: BISOPROLOL
     Indication: PRODUCT USED FOR UNKNOWN INDICATION
     Route: 048
  3. CARBOPLATIN. [Suspect]
     Active Substance: CARBOPLATIN
     Indication: MALIGNANT PERITONEAL NEOPLASM
  4. INEXIUM [Concomitant]
     Active Substance: ESOMEPRAZOLE
     Indication: PRODUCT USED FOR UNKNOWN INDICATION
     Route: 048
  5. LASILIX [Concomitant]
     Active Substance: FUROSEMIDE
     Indication: PRODUCT USED FOR UNKNOWN INDICATION
     Route: 048
  6. MORPHINE [Concomitant]
     Active Substance: MORPHINE
     Indication: PRODUCT USED FOR UNKNOWN INDICATION
     Route: 042
  7. PACLITAXEL. [Suspect]
     Active Substance: PACLITAXEL
     Indication: MALIGNANT PERITONEAL NEOPLASM
  8. BIBF 1120 [Suspect]
     Active Substance: NINTEDANIB
     Indication: MALIGNANT PERITONEAL NEOPLASM
  9. PACLITAXEL. [Suspect]
     Active Substance: PACLITAXEL
     Indication: OVARIAN EPITHELIAL CANCER
     Dosage: DOSE PER APPLICATION AND DAILY DOSE:175 MG/M2
     Route: 065
     Dates: start: 20150408, end: 20150429
  10. PACLITAXEL. [Suspect]
     Active Substance: PACLITAXEL
     Indication: FALLOPIAN TUBE CANCER
  11. LEVOTHYROX [Concomitant]
     Active Substance: LEVOTHYROXINE
     Indication: PRODUCT USED FOR UNKNOWN INDICATION
     Route: 048
  12. CARBOPLATIN. [Suspect]
     Active Substance: CARBOPLATIN
     Indication: OVARIAN EPITHELIAL CANCER
     Dosage: 428 MG
     Route: 065
     Dates: start: 20150408, end: 20150429
  13. CARBOPLATIN. [Suspect]
     Active Substance: CARBOPLATIN
     Indication: FALLOPIAN TUBE CANCER
  14. GAVISCON [Concomitant]
     Active Substance: ALUMINUM HYDROXIDE\MAGNESIUM CARBONATE
     Indication: PRODUCT USED FOR UNKNOWN INDICATION
     Route: 048
  15. BIBF 1120 [Suspect]
     Active Substance: NINTEDANIB
     Indication: OVARIAN EPITHELIAL CANCER
     Route: 065
     Dates: start: 20150409
  16. CARDENSIEL [Concomitant]
     Active Substance: BISOPROLOL FUMARATE
     Indication: PRODUCT USED FOR UNKNOWN INDICATION
     Route: 048
  17. PANTOPRAZOLE [Concomitant]
     Active Substance: PANTOPRAZOLE SODIUM
     Indication: PRODUCT USED FOR UNKNOWN INDICATION
     Route: 048
  18. SOLU-MEDROL [Concomitant]
     Active Substance: METHYLPREDNISOLONE SODIUM SUCCINATE
     Indication: PRODUCT USED FOR UNKNOWN INDICATION
     Route: 042

REACTIONS (7)
  - Renal failure [Recovered/Resolved]
  - Thrombocytopenia [Unknown]
  - Decreased appetite [Recovered/Resolved]
  - Thrombocytopenia [Recovered/Resolved]
  - Aplasia [Fatal]
  - Skin oedema [Unknown]
  - Neutropenia [Recovered/Resolved]

NARRATIVE: CASE EVENT DATE: 20150417
